FAERS Safety Report 24698930 (Version 1)
Quarter: 2024Q4

REPORT INFORMATION
  Report Type: Spontaneous
  Country: US (occurrence: US)
  Receive Date: 20241205
  Receipt Date: 20241205
  Transmission Date: 20250115
  Serious: No
  Sender: ROCHE
  Company Number: US-ROCHE-10000142849

PATIENT
  Age: 56 Year
  Sex: Female
  Weight: 102.05 kg

DRUGS (2)
  1. XOLAIR [Suspect]
     Active Substance: OMALIZUMAB
     Indication: Idiopathic angioedema
     Route: 058
  2. XOLAIR [Suspect]
     Active Substance: OMALIZUMAB

REACTIONS (4)
  - Product dose omission issue [Unknown]
  - Off label use [Unknown]
  - Device issue [Unknown]
  - Device defective [Unknown]

NARRATIVE: CASE EVENT DATE: 20241125
